FAERS Safety Report 8084615-8 (Version None)
Quarter: 2012Q1

REPORT INFORMATION
  Report Type: 
  Country: None (occurrence: None)
  Receive Date: 20120128
  Receipt Date: 20110329
  Transmission Date: 20120608
  Serious: No
  Sender: FDA-Public Use
  Company Number: US-ABBOTT-11P-163-0715371-00

PATIENT
  Age: 53 Year
  Sex: Female

DRUGS (3)
  1. PREDNISONE TAB [Concomitant]
     Indication: PRODUCT USED FOR UNKNOWN INDICATION
  2. HUMIRA [Suspect]
     Indication: RHEUMATOID ARTHRITIS
     Dosage: INITIAL DOSE
     Dates: start: 20110322
  3. METOPROLOL TARTRATE AND HYDROCHLOROTHIAZIDE [Concomitant]
     Indication: HYPERTENSION
     Dosage: NOTTAKINGDUETOLOWBLOODPRESSUR

REACTIONS (5)
  - RESTLESSNESS [None]
  - NASAL CONGESTION [None]
  - NASOPHARYNGITIS [None]
  - COUGH [None]
  - ABNORMAL SENSATION IN EYE [None]
